FAERS Safety Report 9138714 (Version 1)
Quarter: 2013Q1

REPORT INFORMATION
  Report Type: Other
  Country: JP (occurrence: JP)
  Receive Date: 20130305
  Receipt Date: 20130305
  Transmission Date: 20140127
  Serious: Yes (Hospitalization)
  Sender: FDA-Public Use
  Company Number: JP-US-EMD SERONO, INC.-7195757

PATIENT
  Age: 15 Year
  Sex: Female
  Weight: 58 kg

DRUGS (5)
  1. INTERFERON BETA-1A [Suspect]
     Indication: RELAPSING-REMITTING MULTIPLE SCLEROSIS
  2. INTERFERON BETA-1B [Concomitant]
     Indication: RELAPSING-REMITTING MULTIPLE SCLEROSIS
  3. INTERFERON BETA-1B [Concomitant]
  4. INTERFERON BETA-1B [Concomitant]
  5. AZATHIOPRINE [Concomitant]
     Indication: RELAPSING-REMITTING MULTIPLE SCLEROSIS

REACTIONS (2)
  - Central nervous system lesion [Unknown]
  - Multiple sclerosis relapse [Unknown]
